FAERS Safety Report 11219469 (Version 1)
Quarter: 2015Q2

REPORT INFORMATION
  Report Type: Report from Study
  Country: US (occurrence: None)
  Receive Date: 20150624
  Receipt Date: 20150624
  Transmission Date: 20150821
  Serious: Yes (Death, Hospitalization)
  Sender: FDA-Public Use
  Company Number: US-002065

PATIENT
  Age: 80 Year
  Sex: Female

DRUGS (2)
  1. SOLUTIONS FOR PARENTERAL [Concomitant]
  2. GATTEX [Suspect]
     Active Substance: TEDUGLUTIDE\WATER
     Indication: SHORT-BOWEL SYNDROME
     Dosage: DF, SUBCUTANEOUS
     Route: 058
     Dates: start: 20150226, end: 201506

REACTIONS (4)
  - Gastrointestinal necrosis [None]
  - Splenic infection [None]
  - Intestinal gangrene [None]
  - Pyrexia [None]

NARRATIVE: CASE EVENT DATE: 20150602
